FAERS Safety Report 6940475-7 (Version None)
Quarter: 2010Q3

REPORT INFORMATION
  Report Type: 
  Country: None (occurrence: None)
  Receive Date: 20100825
  Receipt Date: 20100812
  Transmission Date: 20110219
  Serious: Yes (Hospitalization)
  Sender: FDA-Public Use
  Company Number: FR-JNJFOC-20100807611

PATIENT
  Sex: Male

DRUGS (5)
  1. IXPRIM [Suspect]
     Indication: BACK PAIN
     Route: 048
  2. MODOPAR [Interacting]
     Indication: PARKINSON'S DISEASE
     Route: 048
  3. VOLTAREN [Concomitant]
  4. NEXIUM [Concomitant]
  5. TRIVASTAL [Concomitant]

REACTIONS (2)
  - DRUG INTERACTION [None]
  - MYOCLONUS [None]
